FAERS Safety Report 8810664 (Version 1)
Quarter: 2012Q4

REPORT INFORMATION
  Report Type: Spontaneous
  Country: EG (occurrence: None)
  Receive Date: 20120924
  Receipt Date: 20120924
  Transmission Date: 20130627
  Serious: Yes (Other)
  Sender: FDA-Public Use
  Company Number: None

PATIENT
  Age: 23 Year
  Sex: Male
  Weight: 84 kg

DRUGS (3)
  1. DEXAMETHASONE [Suspect]
     Indication: ACUTE BRONCHITIS
     Route: 048
     Dates: start: 20070201, end: 20081218
  2. PREDNISOLONE [Suspect]
     Route: 048
     Dates: start: 20110603, end: 20110611
  3. CETIRIZINE [Concomitant]

REACTIONS (2)
  - Ocular hypertension [None]
  - Glaucoma [None]
